FAERS Safety Report 5320961-6 (Version None)
Quarter: 2007Q1

REPORT INFORMATION
  Report Type: 
  Country: None (occurrence: None)
  Receive Date: 20070212
  Receipt Date: 20061010
  Transmission Date: 20070707
  Serious: Yes (Hospitalization)
  Sender: FDA-Public Use
  Company Number: WAES 0610USA06833

PATIENT
  Sex: Female

DRUGS (1)
  1. TRUSOPT [Suspect]
     Indication: EYE DISORDER
     Dosage: OPHT
     Route: 047

REACTIONS (1)
  - DRUG HYPERSENSITIVITY [None]
